FAERS Safety Report 10922045 (Version 3)
Quarter: 2015Q2

REPORT INFORMATION
  Report Type: Report from Study
  Country: US (occurrence: US)
  Receive Date: 20150317
  Receipt Date: 20150617
  Transmission Date: 20150821
  Serious: Yes (Other)
  Sender: FDA-Public Use
  Company Number: US-AMGEN-USASL2015023725

PATIENT
  Age: 70 Year
  Sex: Female

DRUGS (1)
  1. ENBREL [Suspect]
     Active Substance: ETANERCEPT
     Indication: PSORIATIC ARTHROPATHY
     Dosage: 50 MG, QWK
     Route: 065
     Dates: start: 2001, end: 201505

REACTIONS (7)
  - Psoriasis [Recovered/Resolved]
  - Pain [Recovered/Resolved]
  - Hair growth abnormal [Not Recovered/Not Resolved]
  - Breast cancer [Unknown]
  - Alopecia [Not Recovered/Not Resolved]
  - Ear infection [Not Recovered/Not Resolved]
  - Condition aggravated [Recovered/Resolved]

NARRATIVE: CASE EVENT DATE: 2013
